FAERS Safety Report 8600686-1 (Version None)
Quarter: 2012Q3

REPORT INFORMATION
  Report Type: 
  Country: None (occurrence: None)
  Receive Date: 20120817
  Receipt Date: 20120807
  Transmission Date: 20120928
  Serious: Yes (Other)
  Sender: FDA-Public Use
  Company Number: US-JNJFOC-20120516772

PATIENT
  Sex: Female
  Weight: 82.1 kg

DRUGS (6)
  1. SIMPONI [Suspect]
     Route: 058
     Dates: start: 20120501
  2. SIMPONI [Suspect]
     Indication: RHEUMATOID ARTHRITIS
     Route: 058
     Dates: start: 20120608
  3. CYMBALTA [Concomitant]
     Indication: FIBROMYALGIA
     Route: 065
  4. METHOTREXATE [Concomitant]
     Indication: RHEUMATOID ARTHRITIS
     Route: 065
  5. ENBREL [Suspect]
     Indication: RHEUMATOID ARTHRITIS
     Route: 058
     Dates: start: 20120301, end: 20120401
  6. SIMPONI [Suspect]
     Route: 058
     Dates: start: 20110101, end: 20120201

REACTIONS (8)
  - INCORRECT STORAGE OF DRUG [None]
  - BRONCHITIS [None]
  - UNDERDOSE [None]
  - ARTHRALGIA [None]
  - INFECTION [None]
  - DEVICE MALFUNCTION [None]
  - INFLUENZA [None]
  - DRUG INEFFECTIVE [None]
